FAERS Safety Report 9118141 (Version 1)
Quarter: 2013Q1

REPORT INFORMATION
  Report Type: Spontaneous
  Country: KE (occurrence: KE)
  Receive Date: 20130226
  Receipt Date: 20130226
  Transmission Date: 20140127
  Serious: Yes (Other)
  Sender: FDA-Public Use
  Company Number: KE-AMGEN-KENSP2013012594

PATIENT
  Age: 14 Year
  Sex: Male

DRUGS (3)
  1. NEULASTIM [Suspect]
     Indication: PRODUCT USED FOR UNKNOWN INDICATION
     Dosage: UNK
     Route: 065
  2. CISPLATIN [Concomitant]
     Dosage: UNK
  3. ADRIAMYCIN                         /00330902/ [Concomitant]
     Dosage: UNK

REACTIONS (2)
  - Therapeutic response decreased [Unknown]
  - Neutrophil count decreased [Unknown]
